FAERS Safety Report 7249089-5 (Version None)
Quarter: 2011Q1

REPORT INFORMATION
  Report Type: 
  Country: None (occurrence: None)
  Receive Date: 20110128
  Receipt Date: 20100927
  Transmission Date: 20110831
  Serious: Yes (Hospitalization, Other)
  Sender: FDA-Public Use
  Company Number: US-BAYER-201033580NA

PATIENT
  Sex: Female
  Weight: 97.959 kg

DRUGS (6)
  1. UNCODEABLE ^UNCLASSIFIABLE^ [Concomitant]
  2. MAALOX [Concomitant]
  3. YAZ [Suspect]
     Indication: ACNE
  4. ONE A DAY [Concomitant]
  5. YASMIN [Suspect]
     Indication: ACNE
  6. ADVIL COLD AND SINUS [Concomitant]

REACTIONS (8)
  - CHRONIC HEPATITIS [None]
  - GALLBLADDER CHOLESTEROLOSIS [None]
  - CHOLECYSTITIS [None]
  - ALOPECIA [None]
  - CHOLELITHIASIS [None]
  - VOMITING [None]
  - ABDOMINAL PAIN UPPER [None]
  - DIARRHOEA [None]
